FAERS Safety Report 16500097 (Version 2)
Quarter: 2019Q3

REPORT INFORMATION
  Report Type: Spontaneous
  Country: KZ (occurrence: KZ)
  Receive Date: 20190701
  Receipt Date: 20190710
  Transmission Date: 20191004
  Serious: Yes (Other)
  Sender: FDA-Public Use
  Company Number: KZ-IPSEN BIOPHARMACEUTICALS, INC.-2019-11054

PATIENT
  Age: 34 Year
  Sex: Female

DRUGS (3)
  1. DYSPORT [Suspect]
     Active Substance: ABOBOTULINUMTOXINA
     Indication: SKIN WRINKLING
  2. DYSPORT [Suspect]
     Active Substance: ABOBOTULINUMTOXINA
     Indication: SKIN WRINKLING
     Dosage: 40 IU (LEVATOR LABII SUPERIORIS ALAEQUAE NASI-5 IU RIGHT SIDE AND 5 IU LEFT SIDE AND ORBICULARIS OCU
     Route: 065
     Dates: start: 20190603, end: 20190603
  3. DYSPORT [Suspect]
     Active Substance: ABOBOTULINUMTOXINA
     Indication: OFF LABEL USE

REACTIONS (3)
  - Product use issue [Unknown]
  - Off label use [Unknown]
  - Facial paralysis [Not Recovered/Not Resolved]

NARRATIVE: CASE EVENT DATE: 20190603
